FAERS Safety Report 4295958-8 (Version None)
Quarter: 2004Q1

REPORT INFORMATION
  Report Type: 
  Country: None (occurrence: None)
  Receive Date: 20040212
  Receipt Date: 20040204
  Transmission Date: 20041129
  Serious: Yes (Life-Threatening)
  Sender: FDA-Public Use
  Company Number: NO-JNJFOC-20040101895

PATIENT
  Age: 71 Year
  Sex: Male

DRUGS (17)
  1. REMICADE [Suspect]
     Indication: RHEUMATOID ARTHRITIS
     Dosage: 300 MG, 1 IN 1 DAY; INTRAVENOUS (SEE IMAGE)
     Route: 042
     Dates: start: 20030106, end: 20030106
  2. REMICADE [Suspect]
     Indication: RHEUMATOID ARTHRITIS
     Dosage: 300 MG, 1 IN 1 DAY; INTRAVENOUS (SEE IMAGE)
     Route: 042
     Dates: start: 20030204, end: 20030204
  3. REMICADE [Suspect]
     Indication: RHEUMATOID ARTHRITIS
     Dosage: 300 MG, 1 IN 1 DAY; INTRAVENOUS (SEE IMAGE)
     Route: 042
     Dates: start: 20030226, end: 20030226
  4. REMICADE [Suspect]
     Indication: RHEUMATOID ARTHRITIS
     Dosage: 300 MG, 1 IN 1 DAY; INTRAVENOUS (SEE IMAGE)
     Route: 042
     Dates: start: 20030422, end: 20030422
  5. REMICADE [Suspect]
     Indication: RHEUMATOID ARTHRITIS
     Dosage: 300 MG, 1 IN 1 DAY; INTRAVENOUS (SEE IMAGE)
     Route: 042
     Dates: start: 20030618, end: 20030618
  6. REMICADE [Suspect]
     Indication: RHEUMATOID ARTHRITIS
     Dosage: 300 MG, 1 IN 1 DAY; INTRAVENOUS (SEE IMAGE)
     Route: 042
     Dates: start: 20030812, end: 20030812
  7. REMICADE [Suspect]
     Indication: RHEUMATOID ARTHRITIS
     Dosage: 300 MG, 1 IN 1 DAY; INTRAVENOUS (SEE IMAGE)
     Route: 042
     Dates: start: 20031107, end: 20031107
  8. METHOTREXATE [Concomitant]
  9. PREDNISONE [Concomitant]
  10. CONFORTID (INDOMETACIN) [Concomitant]
  11. IMDUR [Concomitant]
  12. ZOCOR [Concomitant]
  13. FOLIC ACID [Concomitant]
  14. ALBYL-E (ALBYL-ENTEROSOLUBILE) [Concomitant]
  15. PARALGIN FORTE (PANADEINE CO) TABLETS [Concomitant]
  16. CALCIGRAN [Concomitant]
  17. APROVEL (IRBESARTAN) [Concomitant]

REACTIONS (12)
  - AZOTAEMIA [None]
  - BLOOD PRESSURE DECREASED [None]
  - ESCHERICHIA INFECTION [None]
  - FALL [None]
  - GENERAL PHYSICAL HEALTH DETERIORATION [None]
  - HERPES ZOSTER [None]
  - JOINT DISLOCATION [None]
  - OEDEMA [None]
  - POST PROCEDURAL COMPLICATION [None]
  - SEPSIS [None]
  - SYNCOPE [None]
  - URINARY TRACT INFECTION [None]
